FAERS Safety Report 13925174 (Version 1)
Quarter: 2017Q3

REPORT INFORMATION
  Report Type: Spontaneous
  Country: US (occurrence: US)
  Receive Date: 20170831
  Receipt Date: 20170831
  Transmission Date: 20171127
  Serious: Yes (Other)
  Sender: FDA-Public Use
  Company Number: US-MYLANLABS-2017M1053842

PATIENT

DRUGS (3)
  1. DINUTUXIMAB [Suspect]
     Active Substance: DINUTUXIMAB
     Indication: NEUROBLASTOMA
     Dosage: ON DAYS 2-5
     Route: 042
  2. TEMOZOLOMIDE. [Suspect]
     Active Substance: TEMOZOLOMIDE
     Indication: NEUROBLASTOMA
     Dosage: 100 MG/M2 PER DOSE ON DAYS 1-5 OF 21-DAY CYCLES
     Route: 048
  3. IRINOTECAN [Suspect]
     Active Substance: IRINOTECAN
     Indication: NEUROBLASTOMA
     Dosage: 50MG/M2 PER DOSE ON DAYS 1-5 OF 21-DAY CYCLES
     Route: 042

REACTIONS (1)
  - Hypoxia [Unknown]
